FAERS Safety Report 18015605 (Version 3)
Quarter: 2020Q3

REPORT INFORMATION
  Report Type: Report from Study
  Country: CA (occurrence: CA)
  Receive Date: 20200713
  Receipt Date: 20200930
  Transmission Date: 20201103
  Serious: Yes (Hospitalization)
  Sender: FDA-Public Use
  Company Number: CA-JNJFOC-20200537456

PATIENT
  Age: 14 Year
  Sex: Male
  Weight: 57.2 kg

DRUGS (1)
  1. REMICADE [Suspect]
     Active Substance: INFLIXIMAB
     Indication: CROHN^S DISEASE
     Dosage: DOSE GIVEN ON 16?SEP?2020
     Route: 042
     Dates: start: 20161118

REACTIONS (6)
  - Abdominal pain [Unknown]
  - Procedural pain [Recovered/Resolved]
  - Abdominal distension [Recovering/Resolving]
  - Off label use [Unknown]
  - Intestinal stenosis [Recovering/Resolving]
  - Product use issue [Unknown]

NARRATIVE: CASE EVENT DATE: 20161118
